FAERS Safety Report 8791806 (Version 1)
Quarter: 2012Q4

REPORT INFORMATION
  Report Type: 
  Country: US (occurrence: US)
  Receive Date: 20120918
  Receipt Date: 20120918
  Transmission Date: 20130627
  Serious: Yes (Hospitalization, Other)
  Sender: FDA-Public Use
  Company Number: US-009507513-1111USA02475

PATIENT

DRUGS (6)
  1. FOSAMAX [Suspect]
     Indication: MULTIPLE MYELOMA
     Route: 048
     Dates: start: 200806, end: 200811
  2. FOSAMAX [Suspect]
     Indication: BONE DENSITY INCREASED
  3. ZOMETA [Suspect]
  4. ZOLOFT [Concomitant]
     Indication: DEPRESSION
  5. REVLIMID [Concomitant]
     Indication: MULTIPLE MYELOMA
     Dosage: 21 days on 7 days off
     Route: 048
     Dates: start: 200805
  6. DEXAMETHASONE [Concomitant]
     Indication: MULTIPLE MYELOMA
     Dosage: 40 mg, qw
     Route: 048
     Dates: start: 200805

REACTIONS (62)
  - Deep vein thrombosis [Unknown]
  - Cholelithiasis [Unknown]
  - Clostridium test positive [Not Recovered/Not Resolved]
  - Plasma cell myeloma [Not Recovered/Not Resolved]
  - Dehydration [Unknown]
  - Cerebral haemorrhage [Unknown]
  - Leukoencephalopathy [Not Recovered/Not Resolved]
  - Hypokalaemia [Not Recovered/Not Resolved]
  - Renal failure [Unknown]
  - Pyrexia [Not Recovered/Not Resolved]
  - Osteonecrosis of jaw [Not Recovered/Not Resolved]
  - Neuropathy peripheral [Unknown]
  - Thrombocytopenia [Unknown]
  - Osteoarthritis [Unknown]
  - Hypogammaglobulinaemia [Unknown]
  - Lung disorder [Unknown]
  - Diverticulum intestinal [Unknown]
  - Deep vein thrombosis [Not Recovered/Not Resolved]
  - Anaemia [Unknown]
  - Fatigue [Unknown]
  - Joint effusion [Unknown]
  - Tinnitus [Unknown]
  - Balance disorder [Unknown]
  - Weight decreased [Unknown]
  - Decreased appetite [Not Recovered/Not Resolved]
  - Renal cyst [Unknown]
  - Varicose vein [Unknown]
  - Bruxism [Unknown]
  - Glossodynia [Not Recovered/Not Resolved]
  - Blister [Not Recovered/Not Resolved]
  - Toothache [Unknown]
  - Oral disorder [Unknown]
  - Oral cavity fistula [Not Recovered/Not Resolved]
  - Cellulitis [Not Recovered/Not Resolved]
  - Dyspnoea [Not Recovered/Not Resolved]
  - Cough [Not Recovered/Not Resolved]
  - Hypothyroidism [Unknown]
  - Urinary tract infection [Unknown]
  - Fall [Unknown]
  - Furuncle [Recovering/Resolving]
  - Radicular cyst [Not Recovered/Not Resolved]
  - Sinusitis [Unknown]
  - Anxiety disorder [Unknown]
  - Abscess [Unknown]
  - Exostosis [Unknown]
  - Impaired healing [Unknown]
  - Oral disorder [Unknown]
  - Oral disorder [Unknown]
  - Tooth disorder [Unknown]
  - Jaw disorder [Unknown]
  - Normochromic normocytic anaemia [Unknown]
  - Stomatitis [Unknown]
  - Urinary tract disorder [Unknown]
  - Off label use [Unknown]
  - Diarrhoea [Recovering/Resolving]
  - Dizziness [Unknown]
  - Vomiting [Unknown]
  - Muscle spasms [Unknown]
  - Abdominal pain [Unknown]
  - Constipation [Unknown]
  - Nausea [Unknown]
  - Constipation [Unknown]
